FAERS Safety Report 21371746 (Version 1)
Quarter: 2022Q3

REPORT INFORMATION
  Report Type: Spontaneous
  Country: AU (occurrence: AU)
  Receive Date: 20220923
  Receipt Date: 20220923
  Transmission Date: 20221026
  Serious: Yes (Hospitalization, Other)
  Sender: FDA-Public Use
  Company Number: AU-PAIPHARMA-2022-AU-000250

PATIENT
  Age: 2 Year
  Sex: Male

DRUGS (2)
  1. PREDNISOLONE SODIUM PHOSPHATE [Suspect]
     Active Substance: PREDNISOLONE SODIUM PHOSPHATE
     Indication: Immunosuppressant drug therapy
     Dosage: 14 MG DAILY
  2. AZATHIOPRINE [Suspect]
     Active Substance: AZATHIOPRINE
     Indication: Immunosuppressant drug therapy
     Dosage: 20 MG DAILY

REACTIONS (2)
  - Pneumatosis intestinalis [Recovered/Resolved]
  - Intussusception [Recovered/Resolved]
